FAERS Safety Report 15812175 (Version 3)
Quarter: 2019Q1

REPORT INFORMATION
  Report Type: Spontaneous
  Country: US (occurrence: US)
  Receive Date: 20190111
  Receipt Date: 20190208
  Transmission Date: 20190417
  Serious: Yes (Death, Other)
  Sender: FDA-Public Use
  Company Number: US-INCYTE CORPORATION-2019IN000167

PATIENT

DRUGS (2)
  1. SYNAGIS [Concomitant]
     Active Substance: PALIVIZUMAB
     Indication: PRODUCT USED FOR UNKNOWN INDICATION
     Route: 065
  2. JAKAFI [Suspect]
     Active Substance: RUXOLITINIB
     Indication: CHRONIC GRAFT VERSUS HOST DISEASE
     Dosage: 2.5 MG, QD
     Route: 048
     Dates: start: 20180822

REACTIONS (10)
  - Cardio-respiratory arrest [Fatal]
  - Platelet count decreased [Unknown]
  - Blood albumin decreased [Unknown]
  - Off label use [Unknown]
  - Blood sodium decreased [Unknown]
  - Blood alkaline phosphatase decreased [Unknown]
  - Product use issue [Unknown]
  - Incorrect dose administered [Unknown]
  - Inappropriate schedule of product administration [Unknown]
  - Blood triglycerides increased [Unknown]

NARRATIVE: CASE EVENT DATE: 20180822
